FAERS Safety Report 13484813 (Version 1)
Quarter: 2017Q2

REPORT INFORMATION
  Report Type: Spontaneous
  Country: US (occurrence: US)
  Receive Date: 20170426
  Receipt Date: 20170426
  Transmission Date: 20170830
  Serious: No
  Sender: FDA-Public Use
  Company Number: US-PFIZER INC-2017181829

PATIENT
  Age: 52 Year
  Sex: Male

DRUGS (2)
  1. FASLODEX [Concomitant]
     Active Substance: FULVESTRANT
     Dosage: UNK
  2. IBRANCE [Suspect]
     Active Substance: PALBOCICLIB
     Dosage: 125 MG, CYCLIC (1 CAPSULE BY MOUTH EVERY DAY WITH FOOD FOR 21 DAYS ON, 7 DAYS OFF)
     Route: 048

REACTIONS (4)
  - Stomatitis [Unknown]
  - Product use issue [Unknown]
  - Fatigue [Unknown]
  - Dry eye [Unknown]
